FAERS Safety Report 24934631 (Version 1)
Quarter: 2025Q1

REPORT INFORMATION
  Report Type: Report from Study
  Country: US (occurrence: US)
  Receive Date: 20250206
  Receipt Date: 20250206
  Transmission Date: 20250409
  Serious: No
  Sender: EXELIXIS
  Company Number: US-EXELIXIS-EXL-2024-001327

PATIENT
  Sex: Male
  Weight: 74.376 kg

DRUGS (1)
  1. CABOMETYX [Suspect]
     Active Substance: CABOZANTINIB S-MALATE
     Indication: Lung disorder
     Dosage: 40 MG, QD
     Route: 048

REACTIONS (3)
  - Product quality issue [Unknown]
  - Product packaging issue [Unknown]
  - Off label use [Unknown]
